FAERS Safety Report 7375380-8 (Version None)
Quarter: 2011Q1

REPORT INFORMATION
  Report Type: 
  Country: None (occurrence: None)
  Receive Date: 20110325
  Receipt Date: 20110322
  Transmission Date: 20110831
  Serious: Yes (Other)
  Sender: FDA-Public Use
  Company Number: CN-ABBOTT-11P-035-0713721-00

PATIENT
  Age: 54 Year
  Sex: Male

DRUGS (3)
  1. DEPAKENE [Suspect]
     Route: 048
     Dates: start: 20110215, end: 20110216
  2. DEPAKENE [Suspect]
     Indication: EPILEPSY
     Route: 048
     Dates: start: 20101003
  3. NIFEDIPINE [Concomitant]
     Indication: PRODUCT USED FOR UNKNOWN INDICATION

REACTIONS (2)
  - EPILEPSY [None]
  - PRODUCT QUALITY ISSUE [None]
